FAERS Safety Report 11843049 (Version 1)
Quarter: 2015Q4

REPORT INFORMATION
  Report Type: Report from Study
  Country: US (occurrence: US)
  Receive Date: 20151216
  Receipt Date: 20151216
  Transmission Date: 20160305
  Serious: No
  Sender: FDA-Public Use
  Company Number: PHHY2013US100515

PATIENT
  Age: 48 Year
  Sex: Female

DRUGS (2)
  1. GILENYA [Suspect]
     Active Substance: FINGOLIMOD HYDROCHLORIDE
     Indication: MULTIPLE SCLEROSIS
     Route: 065
  2. VARENICLINE [Concomitant]
     Active Substance: VARENICLINE
     Indication: EX-TOBACCO USER
     Dosage: UNK
     Route: 065
     Dates: start: 20150206

REACTIONS (6)
  - Blood glucose increased [Not Recovered/Not Resolved]
  - White blood cell count decreased [Recovered/Resolved]
  - Haemoglobin decreased [Unknown]
  - Gamma-glutamyltransferase decreased [Unknown]
  - Haematocrit decreased [Unknown]
  - Lymphopenia [Recovered/Resolved]

NARRATIVE: CASE EVENT DATE: 20121116
